FAERS Safety Report 6658018-4 (Version None)
Quarter: 2010Q1

REPORT INFORMATION
  Report Type: 
  Country: None (occurrence: None)
  Receive Date: 20100330
  Receipt Date: 20100326
  Transmission Date: 20100710
  Serious: Yes (Other)
  Sender: FDA-Public Use
  Company Number: CHPA2010DE05832

PATIENT
  Sex: Female

DRUGS (1)
  1. OTRIVEN (NCH) [Suspect]
     Dosage: UNK, UNK
     Route: 045

REACTIONS (3)
  - DRUG DEPENDENCE, ANTEPARTUM [None]
  - DRUG EXPOSURE DURING PREGNANCY [None]
  - NORMAL NEWBORN [None]
